FAERS Safety Report 9613795 (Version 4)
Quarter: 2013Q4

REPORT INFORMATION
  Report Type: Report from Study
  Country: FR (occurrence: FR)
  Receive Date: 20131010
  Receipt Date: 20131224
  Transmission Date: 20140711
  Serious: Yes (Hospitalization)
  Sender: FDA-Public Use
  Company Number: FR-EXELIXIS-XL18413002789

PATIENT
  Age: 70 Year
  Sex: Male

DRUGS (15)
  1. XL184 [Suspect]
     Indication: PROSTATE CANCER
     Dosage: 60 MG, QD
     Route: 048
     Dates: start: 20130411, end: 20130501
  2. XL184 [Suspect]
     Dosage: 40 MG, QD
     Route: 048
     Dates: start: 20130514, end: 20130528
  3. XL184 [Suspect]
     Indication: PROSTATE CANCER
     Dosage: 5 MG, BID
     Route: 048
     Dates: start: 20130411, end: 20130501
  4. XL184 [Suspect]
     Dosage: 5 MG, BID
     Route: 048
     Dates: start: 20130514, end: 20130528
  5. ELIGARD [Concomitant]
  6. SERETIDE [Concomitant]
  7. AZITHROMYCIN [Concomitant]
  8. TAREG [Concomitant]
  9. PREDNISONE [Concomitant]
  10. AUGMENTIN [Concomitant]
  11. MOVICOL [Concomitant]
  12. FOOD SUPPLEMENTS [Concomitant]
  13. CIFLOX [Concomitant]
  14. PRIMPERAN [Concomitant]
  15. MOUTHWASH (BICARBONATE) [Concomitant]

REACTIONS (1)
  - Aspergillus infection [Not Recovered/Not Resolved]
